FAERS Safety Report 25866664 (Version 1)
Quarter: 2025Q3

REPORT INFORMATION
  Report Type: Spontaneous
  Country: US (occurrence: US)
  Receive Date: 20250930
  Receipt Date: 20250930
  Transmission Date: 20251021
  Serious: No
  Sender: AMGEN
  Company Number: US-AMGEN-USASP2025190261

PATIENT
  Age: 67 Year
  Sex: Female

DRUGS (27)
  1. PROLIA [Suspect]
     Active Substance: DENOSUMAB
     Indication: Osteoporosis
     Dosage: UNK UNK, Q6MO
     Route: 058
     Dates: start: 2024
  2. REPATHA [Suspect]
     Active Substance: EVOLOCUMAB
     Indication: Blood cholesterol increased
     Dosage: 140 MILLIGRAM, Q2WK
     Route: 058
     Dates: start: 202505
  3. METOPROLOL [Concomitant]
     Active Substance: METOPROLOL
     Indication: Hypertension
     Route: 065
  4. LOSARTAN [Concomitant]
     Active Substance: LOSARTAN
     Indication: Hypertension
     Dosage: 150 MILLIGRAM, QD
     Route: 065
     Dates: start: 2025
  5. LOSARTAN [Concomitant]
     Active Substance: LOSARTAN
     Dosage: 75 MILLIGRAM, QD
     Route: 065
     Dates: start: 2025
  6. PANTOPRAZOLE [Concomitant]
     Active Substance: PANTOPRAZOLE
     Indication: Impaired gastric emptying
     Route: 065
     Dates: start: 2023
  7. PANTOPRAZOLE [Concomitant]
     Active Substance: PANTOPRAZOLE
     Indication: Gastrooesophageal reflux disease
  8. ASPIRIN [Concomitant]
     Active Substance: ASPIRIN
     Indication: Anticoagulant therapy
     Route: 065
  9. ASPIRIN [Concomitant]
     Active Substance: ASPIRIN
     Indication: Prophylaxis
  10. MOUNJARO [Concomitant]
     Active Substance: TIRZEPATIDE
     Indication: Type 2 diabetes mellitus
     Dosage: 7.5 MILLIGRAM, QWK
     Dates: start: 2024
  11. DULOXETINE [Concomitant]
     Active Substance: DULOXETINE
     Indication: Fibromyalgia
     Route: 065
  12. DULOXETINE [Concomitant]
     Active Substance: DULOXETINE
     Indication: Neuralgia
     Route: 065
  13. PRAMIPEXOLE [Concomitant]
     Active Substance: PRAMIPEXOLE
     Indication: Restless legs syndrome
     Route: 065
  14. GABAPENTIN [Concomitant]
     Active Substance: GABAPENTIN
     Indication: Diabetic neuropathy
     Route: 065
  15. PITAVASTATIN [Concomitant]
     Active Substance: PITAVASTATIN
     Indication: Blood cholesterol increased
     Route: 065
  16. Women multi [Concomitant]
     Indication: Nutritional supplementation
     Dates: start: 2015
  17. FAMOTIDINE [Concomitant]
     Active Substance: FAMOTIDINE
     Indication: Gastrooesophageal reflux disease
     Route: 065
  18. TRESIBA [Concomitant]
     Active Substance: INSULIN DEGLUDEC
     Indication: Type 2 diabetes mellitus
     Route: 065
     Dates: start: 2022
  19. HUMALOG [Concomitant]
     Active Substance: INSULIN LISPRO
     Indication: Type 2 diabetes mellitus
     Dosage: UNK UNK, Q3WK (ONLY TAKES IF BLOOD SUGAR GOES OVER 200 AS NEEDED, SHE SAID SHE ONLY USES IT ONCE EVE
     Route: 065
  20. ALBUTEROL [Concomitant]
     Active Substance: ALBUTEROL
     Indication: Asthma
     Route: 065
  21. HYOSCYAMINE [Concomitant]
     Active Substance: HYOSCYAMINE
     Indication: Irritable bowel syndrome
     Route: 065
  22. HYOSCYAMINE [Concomitant]
     Active Substance: HYOSCYAMINE
     Indication: Incontinence
  23. HYOSCYAMINE [Concomitant]
     Active Substance: HYOSCYAMINE
     Indication: Diarrhoea
  24. MAGNESIUM [Concomitant]
     Active Substance: MAGNESIUM
     Indication: Muscle spasms
     Dates: start: 2025
  25. ESTRING [Concomitant]
     Active Substance: ESTRADIOL
     Indication: Hormone replacement therapy
  26. GEMTESA [Concomitant]
     Active Substance: VIBEGRON
     Indication: Micturition urgency
     Dosage: 75 MILLIGRAM, QD (WITH DINNER)
     Route: 065
  27. GEMTESA [Concomitant]
     Active Substance: VIBEGRON
     Indication: Incontinence

REACTIONS (2)
  - Generalised anxiety disorder [Unknown]
  - Injection site urticaria [Recovered/Resolved]

NARRATIVE: CASE EVENT DATE: 20250101
